FAERS Safety Report 5086963-2 (Version None)
Quarter: 2006Q3

REPORT INFORMATION
  Report Type: 
  Country: None (occurrence: None)
  Receive Date: 20060818
  Receipt Date: 20060814
  Transmission Date: 20061208
  Serious: Yes (Other)
  Sender: FDA-Public Use
  Company Number: S06-USA-01735-01

PATIENT
  Age: 54 Year
  Sex: Female

DRUGS (7)
  1. LEXAPRO [Suspect]
     Indication: ANXIETY
     Dosage: 10 MG QD PO
     Route: 048
     Dates: start: 20060331, end: 20060401
  2. LEXAPRO [Suspect]
     Indication: ANXIETY
     Dosage: 10 MG QD PO
     Route: 048
     Dates: start: 20060401, end: 20060401
  3. LEXAPRO [Suspect]
     Indication: ANXIETY
     Dosage: 5 MG QD PO
     Route: 048
     Dates: start: 20060324, end: 20060330
  4. ATIVAN [Concomitant]
  5. METOPROLOL TARTRATE [Concomitant]
  6. DIOVAN HCT [Concomitant]
  7. HYDROCHLOROTHIAZIDE [Concomitant]

REACTIONS (2)
  - BLOOD PRESSURE INCREASED [None]
  - HEADACHE [None]
